FAERS Safety Report 17336615 (Version 1)
Quarter: 2020Q1

REPORT INFORMATION
  Report Type: Spontaneous
  Country: US (occurrence: US)
  Receive Date: 20200128
  Receipt Date: 20200128
  Transmission Date: 20200409
  Serious: No
  Sender: FDA-Public Use
  Company Number: US-VERTEX PHARMACEUTICALS-2020-001293

PATIENT
  Sex: Female

DRUGS (9)
  1. MINOCYCLINE HCL [Concomitant]
     Active Substance: MINOCYCLINE HYDROCHLORIDE
  2. PROGESTERONE. [Concomitant]
     Active Substance: PROGESTERONE
  3. ZENPEP [Concomitant]
     Active Substance: PANCRELIPASE AMYLASE\PANCRELIPASE LIPASE\PANCRELIPASE PROTEASE
  4. ALBUTEROL HFA [Concomitant]
     Active Substance: ALBUTEROL SULFATE
  5. SCANDISHAKE MIX [Concomitant]
     Active Substance: DIETARY SUPPLEMENT
  6. SPIRONOLACTONE. [Concomitant]
     Active Substance: SPIRONOLACTONE
  7. SYMDEKO [Suspect]
     Active Substance: IVACAFTOR\TEZACAFTOR
     Indication: CYSTIC FIBROSIS
     Dosage: 1 TAB OF TEZA 100 MG, IVA 150 MG AM; 1 TAB OF IVA 150 MG PM
     Route: 048
     Dates: start: 201811
  8. PULMOZYME [Concomitant]
     Active Substance: DORNASE ALFA
  9. HYPERSAL [Concomitant]
     Active Substance: SODIUM CHLORIDE

REACTIONS (1)
  - Depression [Unknown]
